FAERS Safety Report 21967081 (Version 1)
Quarter: 2023Q1

REPORT INFORMATION
  Report Type: Spontaneous
  Country: US (occurrence: None)
  Receive Date: 20230206
  Receipt Date: 20230206
  Transmission Date: 20230417
  Serious: Yes (Hospitalization)
  Sender: FDA-Public Use
  Company Number: None

PATIENT
  Age: 49 Year
  Sex: Female

DRUGS (1)
  1. JAKAFI [Suspect]
     Active Substance: RUXOLITINIB
     Dosage: 5 MG TWICE A DAY ORAL?
     Route: 048

REACTIONS (3)
  - Haemoptysis [None]
  - Spleen disorder [None]
  - Vein disorder [None]

NARRATIVE: CASE EVENT DATE: 20230109
